FAERS Safety Report 4292585-3 (Version None)
Quarter: 2004Q1

REPORT INFORMATION
  Report Type: 
  Country: None (occurrence: None)
  Receive Date: 20040210
  Receipt Date: 20040128
  Transmission Date: 20041129
  Serious: Yes (Hospitalization)
  Sender: FDA-Public Use
  Company Number: A0491525A

PATIENT
  Age: 48 Year
  Sex: Female

DRUGS (8)
  1. NICODERM CQ [Suspect]
     Indication: EX-SMOKER
     Dosage: 21 MG / PER DAY/ TRANSDERMAL
     Route: 062
     Dates: start: 20030101
  2. NICODERM CQ [Suspect]
     Indication: EX-SMOKER
     Dosage: 14 MG/ PER DAY/ TRANSDERMAL
     Route: 062
     Dates: start: 20030101
  3. NICODERM CQ [Suspect]
     Indication: EX-SMOKER
     Dosage: 7 MG/ PER DAY/ TRANSDERMAL
     Route: 062
     Dates: start: 20030101
  4. CLONAZEPAM [Concomitant]
  5. LITHIUM CARBONATE [Concomitant]
  6. CONJUGATED ESTROGENS [Concomitant]
  7. THYROXINE SODIUM [Concomitant]
  8. ZIPRASIDONE HCL [Concomitant]

REACTIONS (11)
  - ACNE [None]
  - DEPRESSION [None]
  - DIPLOPIA [None]
  - DIZZINESS [None]
  - FAMILY STRESS [None]
  - HEART RATE INCREASED [None]
  - IRRITABILITY [None]
  - NAUSEA [None]
  - NICOTINE DEPENDENCE [None]
  - RASH [None]
  - SMOKER [None]
